FAERS Safety Report 4759173-3 (Version None)
Quarter: 2005Q3

REPORT INFORMATION
  Report Type: 
  Country: None (occurrence: None)
  Receive Date: 20050831
  Receipt Date: 20050811
  Transmission Date: 20060218
  Serious: Yes (Other)
  Sender: FDA-Public Use
  Company Number: GBS050818158

PATIENT
  Age: 10 Year
  Weight: 29 kg

DRUGS (2)
  1. STRATTERA [Suspect]
     Dosage: 25 MG
     Dates: start: 20050627, end: 20050801
  2. CONCERTA [Concomitant]

REACTIONS (4)
  - COORDINATION ABNORMAL [None]
  - HEADACHE [None]
  - SIMPLE PARTIAL SEIZURES [None]
  - SOMNOLENCE [None]
